FAERS Safety Report 18890949 (Version 1)
Quarter: 2021Q1

REPORT INFORMATION
  Report Type: Spontaneous
  Country: US (occurrence: US)
  Receive Date: 20210215
  Receipt Date: 20210215
  Transmission Date: 20210420
  Serious: No
  Sender: FDA-Public Use
  Company Number: US-SA-2021SA051600

PATIENT
  Age: 56 Year
  Sex: Female

DRUGS (6)
  1. NALTREXONE [Concomitant]
     Active Substance: NALTREXONE
  2. ALBUTEROL [SALBUTAMOL] [Concomitant]
     Active Substance: ALBUTEROL
  3. FAMCICLOVIR. [Concomitant]
     Active Substance: FAMCICLOVIR
  4. DUPIXENT [Suspect]
     Active Substance: DUPILUMAB
     Indication: DERMATITIS ATOPIC
     Dosage: 300 MG, QOW
     Route: 058
     Dates: start: 20200124
  5. EUCRISA [Concomitant]
     Active Substance: CRISABOROLE
  6. SYNTHROID [Concomitant]
     Active Substance: LEVOTHYROXINE SODIUM

REACTIONS (2)
  - Condition aggravated [Not Recovered/Not Resolved]
  - Dermatitis atopic [Not Recovered/Not Resolved]
